FAERS Safety Report 25136748 (Version 3)
Quarter: 2025Q3

REPORT INFORMATION
  Report Type: Report from Study
  Country: CA (occurrence: CA)
  Receive Date: 20250328
  Receipt Date: 20250809
  Transmission Date: 20251021
  Serious: Yes (Other)
  Sender: ALEXION PHARMACEUTICALS
  Company Number: CA-AstraZeneca-CH-00834145A

PATIENT
  Age: 25 Year
  Sex: Male

DRUGS (3)
  1. ULTOMIRIS [Suspect]
     Active Substance: RAVULIZUMAB-CWVZ
     Indication: Atypical haemolytic uraemic syndrome
     Dosage: 2700 MILLIGRAM, Q2W
     Dates: start: 20250222
  2. ULTOMIRIS [Suspect]
     Active Substance: RAVULIZUMAB-CWVZ
  3. AMOXICILLIN [Concomitant]
     Active Substance: AMOXICILLIN
     Indication: Prophylaxis

REACTIONS (22)
  - Chronic kidney disease [Unknown]
  - Acute kidney injury [Unknown]
  - Retinopathy hypertensive [Recovering/Resolving]
  - Ascites [Unknown]
  - Thrombotic microangiopathy [Unknown]
  - Pleural effusion [Unknown]
  - Dyspnoea exertional [Unknown]
  - White blood cell count decreased [Unknown]
  - Haemoglobin decreased [Unknown]
  - Haematocrit decreased [Unknown]
  - Mean cell volume decreased [Unknown]
  - Red blood cell count decreased [Unknown]
  - Mean cell haemoglobin decreased [Unknown]
  - Reticulocyte count decreased [Unknown]
  - Neutrophil count decreased [Unknown]
  - Blood urea increased [Unknown]
  - Blood creatinine increased [Unknown]
  - Blood phosphorus increased [Unknown]
  - Blood lactate dehydrogenase increased [Unknown]
  - Blood cholesterol increased [Unknown]
  - Blood albumin decreased [Unknown]
  - Blood pressure increased [Unknown]

NARRATIVE: CASE EVENT DATE: 20250224
